FAERS Safety Report 22611493 (Version 1)
Quarter: 2023Q2

REPORT INFORMATION
  Report Type: Spontaneous
  Country: FR (occurrence: FR)
  Receive Date: 20230616
  Receipt Date: 20230616
  Transmission Date: 20230721
  Serious: Yes (Life-Threatening)
  Sender: FDA-Public Use
  Company Number: None

PATIENT
  Age: 67 Year
  Sex: Female
  Weight: 55 kg

DRUGS (1)
  1. PACLITAXEL [Suspect]
     Active Substance: PACLITAXEL
     Indication: Breast cancer metastatic
     Dosage: ROUTE OF ADMIN. INTRAVENOUS (NOT OTHERWISE SPECIFIED) ( INT )
     Route: 042
     Dates: start: 20230509, end: 20230509

REACTIONS (1)
  - Anaphylactic reaction [Recovered/Resolved]

NARRATIVE: CASE EVENT DATE: 20230509
